FAERS Safety Report 23507853 (Version 1)
Quarter: 2024Q1

REPORT INFORMATION
  Report Type: Spontaneous
  Country: US (occurrence: None)
  Receive Date: 20240209
  Receipt Date: 20240209
  Transmission Date: 20240410
  Serious: Yes (Hospitalization)
  Sender: FDA-Public Use
  Company Number: None

PATIENT
  Age: 9 Year
  Sex: Female
  Weight: 30.8 kg

DRUGS (2)
  1. METHOTREXATE [Suspect]
     Active Substance: METHOTREXATE
     Dates: end: 20220429
  2. VINCRISTINE SULFATE [Suspect]
     Active Substance: VINCRISTINE SULFATE
     Dates: end: 20220429

REACTIONS (16)
  - Disseminated intravascular coagulation [None]
  - Hepatic failure [None]
  - Renal injury [None]
  - Respiratory failure [None]
  - Hypotension [None]
  - Pain in extremity [None]
  - Pyrexia [None]
  - White blood cell count increased [None]
  - Altered state of consciousness [None]
  - Hepatic lesion [None]
  - Eye disorder [None]
  - Leukaemia recurrent [None]
  - Haemofiltration [None]
  - Catheter site haemorrhage [None]
  - Tachypnoea [None]
  - Acidosis [None]

NARRATIVE: CASE EVENT DATE: 20220511
